FAERS Safety Report 25310248 (Version 1)
Quarter: 2025Q2

REPORT INFORMATION
  Report Type: Spontaneous
  Country: US (occurrence: US)
  Receive Date: 20250514
  Receipt Date: 20250514
  Transmission Date: 20250717
  Serious: Yes (Other)
  Sender: NOVO NORDISK
  Company Number: US-NOVOPROD-1425970

PATIENT
  Age: 63 Year
  Sex: Male

DRUGS (2)
  1. OZEMPIC [Suspect]
     Active Substance: SEMAGLUTIDE
     Route: 058
  2. OZEMPIC [Suspect]
     Active Substance: SEMAGLUTIDE
     Indication: Type 2 diabetes mellitus
     Dosage: 2 MG, QW
     Route: 058
     Dates: start: 2023

REACTIONS (4)
  - Gastrointestinal carcinoma [Not Recovered/Not Resolved]
  - Hernia repair [Not Recovered/Not Resolved]
  - Dyspnoea [Not Recovered/Not Resolved]
  - Pain [Unknown]

NARRATIVE: CASE EVENT DATE: 20250101
